FAERS Safety Report 6396248-X (Version None)
Quarter: 2009Q4

REPORT INFORMATION
  Report Type: 
  Country: None (occurrence: None)
  Receive Date: 20091012
  Receipt Date: 20091001
  Transmission Date: 20100525
  Serious: Yes (Hospitalization)
  Sender: FDA-Public Use
  Company Number: DE-BIOGENIDEC-2009BI031719

PATIENT
  Age: 39 Year
  Sex: Female

DRUGS (3)
  1. TYSABRI [Suspect]
     Indication: MULTIPLE SCLEROSIS
     Route: 042
     Dates: start: 20080415
  2. TOLPERISON [Concomitant]
     Indication: MUSCLE SPASTICITY
     Route: 048
     Dates: start: 20090211
  3. THEOPHYLLINE [Concomitant]

REACTIONS (1)
  - HYPERTONIC BLADDER [None]
